FAERS Safety Report 5781330-8 (Version None)
Quarter: 2008Q2

REPORT INFORMATION
  Report Type: 
  Country: None (occurrence: None)
  Receive Date: 20080623
  Receipt Date: 20080315
  Transmission Date: 20081010
  Serious: Yes (Other)
  Sender: FDA-Public Use
  Company Number: SE-BAYER-200816267GPV

PATIENT

DRUGS (10)
  1. ALEMTUZUMAB [Suspect]
     Indication: CHRONIC LYMPHOCYTIC LEUKAEMIA
     Route: 058
  2. ALEMTUZUMAB [Suspect]
     Route: 058
  3. ALEMTUZUMAB [Suspect]
     Route: 058
  4. ALEMTUZUMAB [Suspect]
     Route: 058
  5. COTRIM [Concomitant]
     Indication: ANTIFUNGAL PROPHYLAXIS
     Route: 065
  6. VALACYCLOVIR [Concomitant]
     Indication: ANTIVIRAL PROPHYLAXIS
     Dosage: UNIT DOSE: 500 MG
     Route: 048
  7. FLUCONAZOLE [Concomitant]
     Indication: ANTIFUNGAL PROPHYLAXIS
     Route: 065
  8. ACETAMINOPHEN [Concomitant]
     Indication: PREMEDICATION
     Route: 048
  9. CLEMASTINE FUMARATE [Concomitant]
     Indication: PREMEDICATION
     Route: 042
  10. ALLOPURINOL [Concomitant]
     Indication: PROPHYLAXIS
     Route: 048

REACTIONS (16)
  - ANAEMIA [None]
  - AUTOIMMUNE THROMBOCYTOPENIA [None]
  - AUTOIMMUNE THYROIDITIS [None]
  - CYTOMEGALOVIRUS INFECTION [None]
  - ECZEMA [None]
  - FATIGUE [None]
  - INFUSION RELATED REACTION [None]
  - INJECTION SITE ERYTHEMA [None]
  - INJECTION SITE OEDEMA [None]
  - INJECTION SITE PAIN [None]
  - INJECTION SITE PRURITUS [None]
  - LYMPHOMA TRANSFORMATION [None]
  - LYMPHOPENIA [None]
  - NEUTROPENIA [None]
  - PNEUMOCYSTIS JIROVECI PNEUMONIA [None]
  - PYREXIA [None]
